FAERS Safety Report 17575605 (Version 2)
Quarter: 2020Q3

REPORT INFORMATION
  Report Type: Spontaneous
  Country: US (occurrence: US)
  Receive Date: 20200324
  Receipt Date: 20200722
  Transmission Date: 20201102
  Serious: Yes (Hospitalization, Other)
  Sender: FDA-Public Use
  Company Number: US-TARO-2020TAR00608

PATIENT

DRUGS (3)
  1. POTASSIUM [Concomitant]
     Active Substance: POTASSIUM
     Indication: PRODUCT USED FOR UNKNOWN INDICATION
     Dosage: UNK
     Route: 065
  2. HYDROCHLOROTHIAZIDE. [Concomitant]
     Active Substance: HYDROCHLOROTHIAZIDE
     Indication: PRODUCT USED FOR UNKNOWN INDICATION
     Dosage: UNK
     Route: 065
  3. PHENYTOIN SODIUM EXTENDED [Suspect]
     Active Substance: PHENYTOIN SODIUM
     Indication: SEIZURE
     Dosage: 400 MG, DAILY TOTAL
     Route: 048

REACTIONS (7)
  - Partial seizures [Unknown]
  - Pneumonia [Unknown]
  - Unresponsive to stimuli [Unknown]
  - Urinary tract infection [Unknown]
  - Pulmonary embolism [Recovered/Resolved]
  - Bronchitis [Unknown]
  - Product dose omission issue [Unknown]
